FAERS Safety Report 16303000 (Version 2)
Quarter: 2019Q3

REPORT INFORMATION
  Report Type: Report from Study
  Country: None (occurrence: US)
  Receive Date: 20190513
  Receipt Date: 20190910
  Transmission Date: 20191004
  Serious: Yes (Other)
  Sender: FDA-Public Use
  Company Number: US-INSMED, INC.-US-INS-19-01361

PATIENT
  Age: 74 Year
  Sex: Female

DRUGS (6)
  1. ETHAMBUTOL [Concomitant]
     Active Substance: ETHAMBUTOL HYDROCHLORIDE
     Indication: PRODUCT USED FOR UNKNOWN INDICATION
  2. ARIKAYCE [Suspect]
     Active Substance: AMIKACIN
     Indication: MYCOBACTERIUM AVIUM COMPLEX INFECTION
     Route: 055
     Dates: end: 201904
  3. ERYTHROMYCIN. [Concomitant]
     Active Substance: ERYTHROMYCIN
     Indication: PRODUCT USED FOR UNKNOWN INDICATION
  4. ARIKAYCE [Suspect]
     Active Substance: AMIKACIN
     Route: 055
  5. RIFAMPIN. [Concomitant]
     Active Substance: RIFAMPIN
     Indication: PRODUCT USED FOR UNKNOWN INDICATION
  6. LAMIRA NEBULIZER SYSTEM [Suspect]
     Active Substance: DEVICE

REACTIONS (6)
  - Dysphonia [Unknown]
  - Appendicectomy [Unknown]
  - Immune system disorder [Unknown]
  - Cough [Unknown]
  - Product dose omission [Unknown]
  - Gastrointestinal disorder [Unknown]

NARRATIVE: CASE EVENT DATE: 201904
